FAERS Safety Report 11649362 (Version 1)
Quarter: 2015Q4

REPORT INFORMATION
  Report Type: Spontaneous
  Country: IT (occurrence: IT)
  Receive Date: 20151021
  Receipt Date: 20151021
  Transmission Date: 20160304
  Serious: Yes (Life-Threatening)
  Sender: FDA-Public Use
  Company Number: IT-CELGENE-ITA-2015101708

PATIENT
  Age: 68 Year
  Sex: Female
  Weight: 49 kg

DRUGS (4)
  1. GEMCITABINE [Suspect]
     Active Substance: GEMCITABINE\GEMCITABINE HYDROCHLORIDE
     Indication: PANCREATIC CARCINOMA
     Route: 041
     Dates: start: 20150724
  2. ABRAXANE [Suspect]
     Active Substance: PACLITAXEL
     Dosage: 20% REDUCTION IN DOSE
     Route: 041
     Dates: start: 2015
  3. GEMCITABINE [Suspect]
     Active Substance: GEMCITABINE\GEMCITABINE HYDROCHLORIDE
     Dosage: 20% REDUCTION IN DOSE
     Route: 041
     Dates: start: 2015
  4. ABRAXANE [Suspect]
     Active Substance: PACLITAXEL
     Indication: PANCREATIC CARCINOMA
     Route: 041
     Dates: start: 20150724

REACTIONS (2)
  - Diarrhoea [Recovering/Resolving]
  - Bicytopenia [Recovering/Resolving]

NARRATIVE: CASE EVENT DATE: 20150803
